FAERS Safety Report 21793456 (Version 2)
Quarter: 2023Q1

REPORT INFORMATION
  Report Type: Report from Study
  Country: US (occurrence: US)
  Receive Date: 20221229
  Receipt Date: 20230202
  Transmission Date: 20230417
  Serious: Yes (Hospitalization)
  Sender: FDA-Public Use
  Company Number: US-INCYTE CORPORATION-2022IN012473

PATIENT
  Age: 22 Year
  Sex: Female

DRUGS (8)
  1. RUXOLITINIB [Suspect]
     Active Substance: RUXOLITINIB
     Indication: Acute lymphocytic leukaemia
     Dosage: 70 MG, BID
     Route: 048
     Dates: start: 20201222, end: 20221215
  2. RUXOLITINIB [Suspect]
     Active Substance: RUXOLITINIB
     Dosage: UNK
     Route: 048
     Dates: start: 20221217
  3. METHOTREXATE [Suspect]
     Active Substance: METHOTREXATE
     Indication: Acute lymphocytic leukaemia
     Dosage: 15 MILLIGRAM, DAYS 1, 29, CYCLE 1+2
     Route: 037
     Dates: start: 20221114, end: 20221114
  4. METHOTREXATE [Suspect]
     Active Substance: METHOTREXATE
     Dosage: 20 MILLIGRAM DAYS, 8,15, 22, 29, 36, 43, 50, 57, 64, 71, 78 (MAIN)
     Route: 048
     Dates: start: 20221121, end: 20221212
  5. MERCAPTOPURINE [Suspect]
     Active Substance: MERCAPTOPURINE
     Indication: Acute lymphocytic leukaemia
     Dosage: 100 MILLIGRAM, QD DAYS 1-84
     Route: 048
     Dates: start: 20221114, end: 20221215
  6. VINCRISTINE [Concomitant]
     Active Substance: VINCRISTINE
     Indication: Acute lymphocytic leukaemia
     Dosage: 2 MILLIGRAM DAY 1, 29, 57
     Route: 042
     Dates: start: 20221114, end: 20221205
  7. ACYCLOVIR [Concomitant]
     Active Substance: ACYCLOVIR
     Indication: Stomatitis
     Dosage: 400 MG, BID
     Route: 048
     Dates: start: 20221205, end: 20221218
  8. ACYCLOVIR [Concomitant]
     Active Substance: ACYCLOVIR
     Indication: Herpes simplex
     Dosage: 9600 MG
     Route: 065

REACTIONS (2)
  - Febrile neutropenia [Recovering/Resolving]
  - Influenza [Recovering/Resolving]

NARRATIVE: CASE EVENT DATE: 20221216
